FAERS Safety Report 4677991-7 (Version None)
Quarter: 2005Q2

REPORT INFORMATION
  Report Type: 
  Country: None (occurrence: None)
  Receive Date: 20050531
  Receipt Date: 20050411
  Transmission Date: 20051028
  Serious: Yes (Other)
  Sender: FDA-Public Use
  Company Number: 2005CG00745

PATIENT
  Age: 642 Month
  Sex: Female
  Weight: 72 kg

DRUGS (2)
  1. ARIMIDEX [Suspect]
     Indication: BREAST CANCER
     Route: 048
     Dates: start: 20040801, end: 20050201
  2. RADIOTHERAPY TO BREAST [Concomitant]
     Indication: BREAST CANCER
     Dates: start: 20041201, end: 20050101

REACTIONS (1)
  - CRYPTOGENIC ORGANIZING PNEUMONIA [None]
